FAERS Safety Report 7750776-0 (Version None)
Quarter: 2011Q3

REPORT INFORMATION
  Report Type: 
  Country: None (occurrence: None)
  Receive Date: 20110914
  Receipt Date: 20110913
  Transmission Date: 20111222
  Serious: Yes (Disabling, Other)
  Sender: FDA-Public Use
  Company Number: US-BRISTOL-MYERS SQUIBB COMPANY-15983653

PATIENT
  Age: 66 Year
  Sex: Male

DRUGS (11)
  1. ALLOPURINOL [Concomitant]
  2. ATENOLOL [Concomitant]
  3. VITAMIN D2 [Concomitant]
  4. LASIX [Concomitant]
  5. ACETYLSALICYLIC ACID SRT [Concomitant]
  6. FERROUS SULFATE TAB [Concomitant]
  7. NITROGLYCERIN [Concomitant]
  8. PLAVIX [Concomitant]
  9. SIMVASTATIN [Concomitant]
  10. ERBITUX [Suspect]
     Indication: TONSIL CANCER
     Dosage: BMS09C00625A(EXP1/13),09C006240+10C00198C,C10C00198EXP6/1),609C006454C(2/13),10C00202A,04C00654C
     Route: 042
     Dates: start: 20110523, end: 20110705
  11. INSULIN [Concomitant]

REACTIONS (4)
  - DYSPNOEA [None]
  - LUNG DISORDER [None]
  - PULMONARY FUNCTION TEST DECREASED [None]
  - OXYGEN SATURATION DECREASED [None]
